FAERS Safety Report 24825722 (Version 1)
Quarter: 2025Q1

REPORT INFORMATION
  Report Type: Spontaneous
  Country: AE (occurrence: AE)
  Receive Date: 20250109
  Receipt Date: 20250109
  Transmission Date: 20250409
  Serious: Yes (Other)
  Sender: ASTELLAS
  Company Number: AE-ASTELLAS-2025-AER-000329

PATIENT
  Sex: Male

DRUGS (1)
  1. XOSPATA [Suspect]
     Active Substance: GILTERITINIB
     Indication: Product used for unknown indication
     Route: 065

REACTIONS (20)
  - Enterococcal infection [Unknown]
  - Enterococcal infection [Unknown]
  - Bronchopulmonary aspergillosis [Unknown]
  - Pneumonia necrotising [Unknown]
  - Hypokalaemia [Unknown]
  - Enterocolitis [Unknown]
  - Cholecystitis [Unknown]
  - Hemiplegia [Not Recovered/Not Resolved]
  - Cerebral mass effect [Unknown]
  - Central nervous system neoplasm [Unknown]
  - Haematological infection [Unknown]
  - Bacterial infection [Unknown]
  - Escherichia infection [Unknown]
  - Proteus infection [Unknown]
  - Nephropathy [Unknown]
  - Hypomagnesaemia [Unknown]
  - Liver function test increased [Unknown]
  - Hepatic steatosis [Unknown]
  - Off label use [Unknown]
  - Product use issue [Unknown]
